FAERS Safety Report 4394906-X (Version None)
Quarter: 2004Q3

REPORT INFORMATION
  Report Type: 
  Country: None (occurrence: None)
  Receive Date: 20040712
  Receipt Date: 20040630
  Transmission Date: 20050211
  Serious: Yes (Other)
  Sender: FDA-Public Use
  Company Number: GB-BRISTOL-MYERS SQUIBB COMPANY-12628509

PATIENT
  Age: 36 Year
  Sex: Male
  Weight: 72 kg

DRUGS (4)
  1. REYATAZ [Suspect]
     Dates: start: 20031103
  2. RITONAVIR [Suspect]
     Dates: start: 20031103
  3. DIDANOSINE [Concomitant]
     Dates: start: 20000701
  4. TENOFOVIR DISOPROXIL FUMARATE [Concomitant]
     Dates: start: 20020201

REACTIONS (3)
  - INSOMNIA [None]
  - MEMORY IMPAIRMENT [None]
  - PSYCHOMOTOR HYPERACTIVITY [None]
